FAERS Safety Report 8790187 (Version 1)
Quarter: 2012Q4

REPORT INFORMATION
  Report Type: 
  Country: US (occurrence: US)
  Receive Date: 20120917
  Receipt Date: 20120917
  Transmission Date: 20130627
  Serious: Yes (Hospitalization, Other)
  Sender: FDA-Public Use
  Company Number: US-TEVA-358684USA

PATIENT
  Age: 54 Year
  Sex: Male

DRUGS (2)
  1. ALPRAZOLAM [Suspect]
     Indication: OVERDOSE
     Route: 065
  2. OXYCODONE [Suspect]
     Indication: OVERDOSE
     Route: 065

REACTIONS (5)
  - Overdose [Recovering/Resolving]
  - Hypoxia [Recovering/Resolving]
  - Leukoencephalopathy [Recovering/Resolving]
  - Respiratory arrest [Recovering/Resolving]
  - Pneumonia aspiration [Recovering/Resolving]
